FAERS Safety Report 6571676-8 (Version None)
Quarter: 2010Q1

REPORT INFORMATION
  Report Type: 
  Country: None (occurrence: None)
  Receive Date: 20100205
  Receipt Date: 20100129
  Transmission Date: 20100710
  Serious: Yes (Other)
  Sender: FDA-Public Use
  Company Number: PHHY2010DE05599

PATIENT
  Sex: Female

DRUGS (1)
  1. ESTRADERM [Suspect]
     Dosage: 50 UG ONCE DAILY
     Route: 062
     Dates: start: 20091101, end: 20100121

REACTIONS (3)
  - ARRHYTHMIA [None]
  - DRUG LEVEL CHANGED [None]
  - PAIN IN EXTREMITY [None]
